FAERS Safety Report 9168985 (Version 1)
Quarter: 2013Q1

REPORT INFORMATION
  Report Type: Spontaneous
  Country: US (occurrence: None)
  Receive Date: 20130307
  Receipt Date: 20130307
  Transmission Date: 20140127
  Serious: Yes (Other)
  Sender: FDA-Public Use
  Company Number: 2013P1002905

PATIENT
  Age: 74 Year
  Sex: Female

DRUGS (5)
  1. LISINOPRIL [Suspect]
     Indication: HYPERTENSION
  2. RECOMBINANT TISSUE PLASMINOGEN ACTIVATOR [Suspect]
     Indication: ISCHAEMIC STROKE
     Route: 040
  3. ATENOLOL [Concomitant]
  4. HYDROCHLOROTHIAZIDE [Concomitant]
  5. PREV MEDS [Concomitant]

REACTIONS (2)
  - Cerebral infarction [None]
  - Angioedema [None]
